FAERS Safety Report 7422021-7 (Version None)
Quarter: 2011Q2

REPORT INFORMATION
  Report Type: 
  Country: None (occurrence: None)
  Receive Date: 20110418
  Receipt Date: 20110413
  Transmission Date: 20111010
  Serious: Yes (Death)
  Sender: FDA-Public Use
  Company Number: BO-PFIZER INC-2011071791

PATIENT
  Age: 97 Year
  Sex: Male

DRUGS (2)
  1. CELEBREX [Suspect]
     Indication: ARTHRITIS
     Dosage: 200 MG, 1X/DAY
     Route: 048
     Dates: start: 20090728, end: 20100501
  2. MELOXICAM [Concomitant]
     Indication: HERPES VIRUS INFECTION

REACTIONS (1)
  - CARDIAC ARREST [None]
